FAERS Safety Report 4665647-6 (Version None)
Quarter: 2005Q2

REPORT INFORMATION
  Report Type: 
  Country: None (occurrence: None)
  Receive Date: 20050517
  Receipt Date: 20050502
  Transmission Date: 20051028
  Serious: Yes (Hospitalization)
  Sender: FDA-Public Use
  Company Number: US_0505116903

PATIENT
  Age: 15 Year
  Sex: Female
  Weight: 61 kg

DRUGS (7)
  1. STRATTERA [Suspect]
     Dosage: 40 MG
     Dates: start: 20031029, end: 20040301
  2. SEROQUEL [Concomitant]
  3. LEXAPRO [Concomitant]
  4. DEXTROAMPHETAMINE (DEXAMFETAMINE) [Concomitant]
  5. CLONAZEPAM [Concomitant]
  6. FLUTICASONE PROPIONATE W/SALMETEROL [Concomitant]
  7. ALBUTEROL [Concomitant]

REACTIONS (4)
  - ANXIETY [None]
  - DEREALISATION [None]
  - OBSESSIVE THOUGHTS [None]
  - THINKING ABNORMAL [None]
